FAERS Safety Report 6399518-4 (Version None)
Quarter: 2009Q4

REPORT INFORMATION
  Report Type: 
  Country: None (occurrence: None)
  Receive Date: 20091013
  Receipt Date: 20091013
  Transmission Date: 20100525
  Serious: Yes (Life-Threatening, Hospitalization, Disabling, Other)
  Sender: FDA-Public Use
  Company Number: None

PATIENT
  Age: 39 Year
  Sex: Male
  Weight: 83.0083 kg

DRUGS (2)
  1. AVELOX [Suspect]
     Indication: SINUSITIS
     Dosage: 400 MG DAILY 10 DAY
     Dates: start: 20050712, end: 20050720
  2. ADVIL SINUS - OTC [Concomitant]

REACTIONS (11)
  - BALANCE DISORDER [None]
  - BLOOD PRESSURE INCREASED [None]
  - BRAIN INJURY [None]
  - CEREBRAL HAEMORRHAGE [None]
  - CEREBRAL THROMBOSIS [None]
  - COORDINATION ABNORMAL [None]
  - DYSARTHRIA [None]
  - HYPERHIDROSIS [None]
  - LOSS OF CONSCIOUSNESS [None]
  - POST PROCEDURAL COMPLICATION [None]
  - TENDON RUPTURE [None]
